FAERS Safety Report 4638824-8 (Version None)
Quarter: 2005Q2

REPORT INFORMATION
  Report Type: 
  Country: None (occurrence: None)
  Receive Date: 20050418
  Receipt Date: 20050418
  Transmission Date: 20051028
  Serious: Yes (Other)
  Sender: FDA-Public Use
  Company Number: None

PATIENT
  Age: 44 Year
  Sex: Female
  Weight: 58.0604 kg

DRUGS (1)
  1. PREMPHASE 14/14 [Suspect]
     Indication: MENOPAUSE
     Dosage: ONE DAILY
     Dates: start: 20000301, end: 20050301

REACTIONS (19)
  - ALOPECIA [None]
  - ANXIETY [None]
  - CARDIAC DISORDER [None]
  - CARDIAC FAILURE [None]
  - CHEST PAIN [None]
  - CRYING [None]
  - DEPRESSION [None]
  - DRUG INEFFECTIVE [None]
  - DRUG WITHDRAWAL SYNDROME [None]
  - DYSPNOEA [None]
  - FATIGUE [None]
  - FEAR [None]
  - FEAR OF DISEASE [None]
  - FEELING ABNORMAL [None]
  - MULTIPLE ALLERGIES [None]
  - PALPITATIONS [None]
  - STRESS [None]
  - WEIGHT INCREASED [None]
  - WEIGHT LOSS POOR [None]
